FAERS Safety Report 22077441 (Version 3)
Quarter: 2023Q2

REPORT INFORMATION
  Report Type: Other
  Country: JP (occurrence: JP)
  Receive Date: 20230309
  Receipt Date: 20230411
  Transmission Date: 20230722
  Serious: Yes (Hospitalization)
  Sender: FDA-Public Use
  Company Number: JP-CHUGAI-2023007034

PATIENT
  Age: 41 Year
  Sex: Female
  Weight: 48.9 kg

DRUGS (30)
  1. SATRALIZUMAB [Suspect]
     Active Substance: SATRALIZUMAB
     Indication: Neuromyelitis optica spectrum disorder
     Dosage: 18/JAN/2021, RECEIVED DOSE
     Route: 058
     Dates: start: 20201221
  2. SATRALIZUMAB [Suspect]
     Active Substance: SATRALIZUMAB
     Route: 058
     Dates: start: 20210215
  3. PREDNISOLONE [Suspect]
     Active Substance: PREDNISOLONE
     Indication: Neuromyelitis optica spectrum disorder
     Route: 048
     Dates: start: 199510
  4. PREDNISOLONE [Suspect]
     Active Substance: PREDNISOLONE
     Route: 048
  5. PREDNISOLONE [Suspect]
     Active Substance: PREDNISOLONE
     Route: 048
  6. PREDNISOLONE [Suspect]
     Active Substance: PREDNISOLONE
     Dosage: 14 MILLIGRAM, QD(AFTER BREAKFAST)
     Route: 048
     Dates: start: 20230116
  7. VENILON [Suspect]
     Active Substance: HUMAN IMMUNOGLOBULIN G
     Indication: Product used for unknown indication
     Route: 041
     Dates: start: 20230222, end: 20230226
  8. MIZORIBINE [Concomitant]
     Active Substance: MIZORIBINE
     Indication: Neuromyelitis optica spectrum disorder
     Dosage: UNK
     Route: 065
     Dates: start: 1995
  9. SULPIRIDE [Concomitant]
     Active Substance: SULPIRIDE
     Dosage: 25 MILLIGRAM, QD(AFTER DINNER)
     Route: 048
  10. SERTRALINE HYDROCHLORIDE [Concomitant]
     Active Substance: SERTRALINE HYDROCHLORIDE
     Dosage: 100 MILLIGRAM, QD(AFTER DINNER)
     Route: 048
     Dates: start: 202211
  11. BROTIZOLAM [Concomitant]
     Active Substance: BROTIZOLAM
     Dosage: 0.25 MILLIGRAM, HS
     Route: 048
     Dates: start: 20110301
  12. HERBALS [Concomitant]
     Active Substance: HERBALS
     Dosage: 2.5 GRAM, TID
     Route: 048
     Dates: start: 20181025
  13. SYMBICORT [Concomitant]
     Active Substance: BUDESONIDE\FORMOTEROL FUMARATE DIHYDRATE
     Dosage: 1 DOSAGE FORM, BID
     Route: 048
     Dates: start: 20181004
  14. TRANEXAMIC ACID [Concomitant]
     Active Substance: TRANEXAMIC ACID
     Dosage: 250 MILLIGRAM, TID
     Route: 048
     Dates: start: 20230116
  15. RABEPRAZOLE SODIUM [Concomitant]
     Active Substance: RABEPRAZOLE SODIUM
     Dosage: 10 MILLIGRAM, QD(AFTER DINNER)
     Route: 048
     Dates: start: 20170308
  16. METHYLCOBALAMIN [Concomitant]
     Active Substance: METHYLCOBALAMIN
     Dosage: 1 DOSAGE FORM, TID
     Route: 048
  17. TOCOPHERYL NICOTINATE [Concomitant]
     Active Substance: TOCOPHERYL NICOTINATE, D-.ALPHA.
     Dosage: 200 MILLIGRAM, TID
     Route: 048
  18. TRIMEBUTINE MALEATE [Concomitant]
     Active Substance: TRIMEBUTINE MALEATE
     Dosage: 100 MILLIGRAM, TID
     Route: 048
     Dates: start: 20120406
  19. MIZORIBINE [Concomitant]
     Active Substance: MIZORIBINE
     Dosage: 100 MILLIGRAM, QD
     Route: 048
     Dates: start: 1996
  20. CARBAMAZEPINE [Concomitant]
     Active Substance: CARBAMAZEPINE
     Dosage: 200 MILLIGRAM, BID
     Route: 048
  21. CILOSTAZOL [Concomitant]
     Active Substance: CILOSTAZOL
     Dosage: 50 MILLIGRAM, BID
     Route: 048
     Dates: start: 20141117
  22. PREGABALIN [Concomitant]
     Active Substance: PREGABALIN
     Dosage: 75 MILLIGRAM, BID
     Route: 048
     Dates: start: 20121212
  23. POTASSIUM ASPARTATE [Concomitant]
     Active Substance: POTASSIUM ASPARTATE
     Dosage: 600 MILLIGRAM, TID
     Route: 048
     Dates: start: 20110323
  24. FERROUS CITRATE [Concomitant]
     Active Substance: FERROUS CITRATE
     Dosage: 50 MILLIGRAM, QD(AFTER BREAKFAST)
     Route: 048
     Dates: start: 20200914
  25. MAGNESIUM OXIDE [Concomitant]
     Active Substance: MAGNESIUM OXIDE
     Dosage: 660 MILLIGRAM, TID
     Route: 048
     Dates: start: 20210215
  26. ALFACALCIDOL [Concomitant]
     Active Substance: ALFACALCIDOL
     Dosage: 0.5 MICROGRAM, QD(AFTER DINNER)
     Route: 048
     Dates: start: 20220801
  27. SODIUM GUALENATE [Concomitant]
     Active Substance: SODIUM GUALENATE
     Dosage: UNK
     Route: 048
     Dates: start: 20230116
  28. CALONAL [Concomitant]
     Active Substance: ACETAMINOPHEN
     Indication: Headache
     Dosage: 1 DOSAGE FORM, PRN
     Route: 048
  29. REBAMIPIDE [Concomitant]
     Active Substance: REBAMIPIDE
     Indication: Headache
     Dosage: 100 MILLIGRAM, PRN
  30. HYALURONATE SODIUM [Concomitant]
     Active Substance: HYALURONATE SODIUM
     Dosage: UNK, QID
     Route: 047

REACTIONS (3)
  - Neuromyelitis optica spectrum disorder [Recovered/Resolved]
  - White blood cell count decreased [Not Recovered/Not Resolved]
  - Platelet count decreased [Recovered/Resolved]

NARRATIVE: CASE EVENT DATE: 20230214
